FAERS Safety Report 19792668 (Version 1)
Quarter: 2021Q3

REPORT INFORMATION
  Report Type: Spontaneous
  Country: GB (occurrence: GB)
  Receive Date: 20210906
  Receipt Date: 20210906
  Transmission Date: 20211014
  Serious: Yes (Hospitalization, Congenital Anomaly)
  Sender: FDA-Public Use
  Company Number: GB-TEVA-2021-GB-1948577

PATIENT
  Age: 56 Year
  Sex: Male

DRUGS (9)
  1. NAPROXEN. [Suspect]
     Active Substance: NAPROXEN
     Indication: OSTEOARTHRITIS
     Dosage: 1000 MILLIGRAM DAILY; FOR THREE DOSES
     Route: 048
     Dates: start: 202106, end: 202106
  2. BETAHISTINE [Concomitant]
     Active Substance: BETAHISTINE
  3. INDAPAMIDE. [Concomitant]
     Active Substance: INDAPAMIDE
  4. AMITRIPTYLINE [Concomitant]
     Active Substance: AMITRIPTYLINE
  5. AMLODIPINE [Concomitant]
     Active Substance: AMLODIPINE BESYLATE
  6. IBUPROFEN. [Concomitant]
     Active Substance: IBUPROFEN
  7. LANSOPRAZOLE. [Concomitant]
     Active Substance: LANSOPRAZOLE
  8. FOLIC ACID. [Concomitant]
     Active Substance: FOLIC ACID
  9. PROPRANOLOL [Concomitant]
     Active Substance: PROPRANOLOL HYDROCHLORIDE

REACTIONS (4)
  - Anxiety [Unknown]
  - Tinnitus [Not Recovered/Not Resolved]
  - Reflux gastritis [Unknown]
  - Headache [Unknown]

NARRATIVE: CASE EVENT DATE: 202106
